FAERS Safety Report 5296646-1 (Version None)
Quarter: 2007Q2

REPORT INFORMATION
  Report Type: 
  Country: None (occurrence: None)
  Receive Date: 20070413
  Receipt Date: 20070404
  Transmission Date: 20071010
  Serious: Yes (Other)
  Sender: FDA-Public Use
  Company Number: JP-PFIZER INC-2007009505

PATIENT
  Age: 64 Year
  Sex: Male

DRUGS (4)
  1. XALATAN [Suspect]
     Dosage: FREQ:DAILY
     Route: 031
  2. NORVASC [Concomitant]
     Route: 048
  3. TRUSOPT [Concomitant]
     Route: 031
  4. PATANOL [Concomitant]
     Route: 031

REACTIONS (1)
  - BLOOD PRESSURE INCREASED [None]
